FAERS Safety Report 17761204 (Version 1)
Quarter: 2020Q2

REPORT INFORMATION
  Report Type: Spontaneous
  Country: US (occurrence: US)
  Receive Date: 20200508
  Receipt Date: 20200508
  Transmission Date: 20200714
  Serious: Yes (Hospitalization)
  Sender: FDA-Public Use
  Company Number: None

PATIENT
  Age: 84 Year
  Sex: Male
  Weight: 94.5 kg

DRUGS (13)
  1. FINASTERIDE 1MG [Concomitant]
     Active Substance: FINASTERIDE
  2. TAMSULOSIN 0.4MG [Concomitant]
     Active Substance: TAMSULOSIN
  3. WARFARIN 5MG [Concomitant]
     Active Substance: WARFARIN
  4. ABIRATERONE. [Suspect]
     Active Substance: ABIRATERONE ACETATE
     Indication: PROSTATE CANCER
     Route: 048
     Dates: start: 20200205, end: 20200506
  5. VITAMIN D3 1.25MG [Concomitant]
  6. METHOTREXATE 2.5 [Concomitant]
     Active Substance: METHOTREXATE
  7. LISINOPRIL 10MG [Concomitant]
     Active Substance: LISINOPRIL
  8. SERTRALINE [Concomitant]
     Active Substance: SERTRALINE HYDROCHLORIDE
  9. BETIMOL [Concomitant]
     Active Substance: TIMOLOL
  10. COSOP 22.3-6.8 [Concomitant]
  11. PREDNISONE 5MG [Concomitant]
     Active Substance: PREDNISONE
  12. ELIGARD 22.5 [Concomitant]
  13. ZOMETA 4MG/5ML [Concomitant]

REACTIONS (4)
  - Dyspnoea [None]
  - SARS-CoV-2 test [None]
  - Pyrexia [None]
  - Suspected COVID-19 [None]

NARRATIVE: CASE EVENT DATE: 20200506
